FAERS Safety Report 7563685-7 (Version None)
Quarter: 2011Q2

REPORT INFORMATION
  Report Type: 
  Country: None (occurrence: None)
  Receive Date: 20110622
  Receipt Date: 20110607
  Transmission Date: 20111010
  Serious: Yes (Hospitalization)
  Sender: FDA-Public Use
  Company Number: US-ROCHE-784384

PATIENT

DRUGS (4)
  1. BEVACIZUMAB [Suspect]
     Dosage: PHASE A, CYCLE: 3 WEEKS (1-6) OVER 30-90 MINUTES ON DAY 1, BEGINNING WITH CYCLE 2.
     Route: 042
     Dates: start: 20100908
  2. BEVACIZUMAB [Suspect]
     Dosage: PHASE B, CYCLE 7-22, OVER 30-90 MINUTES ON DAY 1. LAST DOSE PRIOR TO SAE: 18 JANUARY 2011
     Route: 042
  3. TAXOL [Suspect]
     Dosage: PHASE A: CYCLE 3 WEEKS (1-6). OVER 1 HOUR ON DAYS 1, 8 AND 15.
     Route: 042
     Dates: start: 20100818
  4. CARBOPLATIN [Suspect]
     Dosage: PHASE A CYCLE: 3 WEEKS (1-6), DOSE : AUC: 6 ON DAY 1
     Route: 042
     Dates: start: 20100818

REACTIONS (1)
  - COLONIC OBSTRUCTION [None]
